FAERS Safety Report 25205760 (Version 1)
Quarter: 2025Q2

REPORT INFORMATION
  Report Type: Spontaneous
  Country: HR (occurrence: HR)
  Receive Date: 20250417
  Receipt Date: 20250417
  Transmission Date: 20250717
  Serious: Yes (Other)
  Sender: CHEPLAPHARM
  Company Number: None

PATIENT
  Age: 23 Year
  Sex: Female

DRUGS (3)
  1. OLANZAPINE [Suspect]
     Active Substance: OLANZAPINE
     Dosage: 28 TABLETS OF 10 MG?DAILY DOSE: 280 MILLIGRAM
     Route: 048
     Dates: start: 20250225, end: 20250225
  2. LAMOTRIGINE [Suspect]
     Active Substance: LAMOTRIGINE
     Dosage: 70 TABLETS  OF 50 MG?DAILY DOSE: 3500 MILLIGRAM
     Route: 048
     Dates: start: 20250225, end: 20250225
  3. NITRAZEPAM [Suspect]
     Active Substance: NITRAZEPAM
     Dosage: 30 TABLETS OF 5 MG?DAILY DOSE: 150 MILLIGRAM
     Route: 048
     Dates: start: 20250225, end: 20250225

REACTIONS (3)
  - Suicide attempt [Recovered/Resolved]
  - Somnolence [Unknown]
  - Intentional overdose [Recovered/Resolved]

NARRATIVE: CASE EVENT DATE: 20250225
